FAERS Safety Report 12347517 (Version 2)
Quarter: 2016Q2

REPORT INFORMATION
  Report Type: Spontaneous
  Country: US (occurrence: US)
  Receive Date: 20160509
  Receipt Date: 20160513
  Transmission Date: 20160815
  Serious: Yes (Hospitalization)
  Sender: FDA-Public Use
  Company Number: US-ACTELION-A-NJ2016-135603

PATIENT
  Age: 44 Year
  Sex: Female

DRUGS (3)
  1. LETAIRIS [Concomitant]
     Active Substance: AMBRISENTAN
  2. VELETRI [Suspect]
     Active Substance: EPOPROSTENOL
     Indication: PULMONARY ARTERIAL HYPERTENSION
     Dosage: 30 NG/DL, PER MIN
     Route: 042
     Dates: start: 20141201
  3. TADALAFIL [Concomitant]
     Active Substance: TADALAFIL

REACTIONS (3)
  - Syncope [Unknown]
  - Fluid retention [Unknown]
  - Hypotension [Unknown]
